FAERS Safety Report 5994827-2 (Version None)
Quarter: 2008Q4

REPORT INFORMATION
  Report Type: 
  Country: None (occurrence: None)
  Receive Date: 20081212
  Receipt Date: 20080915
  Transmission Date: 20090506
  Serious: No
  Sender: FDA-Public Use
  Company Number: US-ABBOTT-08P-163-0476530-00

PATIENT
  Sex: Female
  Weight: 63.56 kg

DRUGS (6)
  1. HUMIRA [Suspect]
     Indication: RHEUMATOID ARTHRITIS
     Route: 058
     Dates: start: 20040401, end: 20080701
  2. HUMIRA [Suspect]
  3. FEXOFENADINE HYDROCHLORIDE [Interacting]
     Indication: SEASONAL ALLERGY
     Route: 048
  4. LORATADINE [Concomitant]
     Indication: SEASONAL ALLERGY
     Dosage: 1-2 (10MG) DAILY UP TO 20MG DAILY
     Route: 048
  5. PRIMPRO [Concomitant]
     Indication: MENOPAUSE
     Route: 048
  6. FOLIC ACID [Concomitant]
     Indication: VITAMIN SUPPLEMENTATION
     Route: 048
     Dates: start: 20010101

REACTIONS (8)
  - COLONIC POLYP [None]
  - DRUG INTERACTION [None]
  - FATIGUE [None]
  - PAIN [None]
  - PHOTOSENSITIVITY REACTION [None]
  - RASH [None]
  - RED BLOOD CELL SEDIMENTATION RATE INCREASED [None]
  - SINUS DISORDER [None]
